FAERS Safety Report 25831071 (Version 2)
Quarter: 2025Q4

REPORT INFORMATION
  Report Type: Spontaneous
  Country: US (occurrence: US)
  Receive Date: 20250922
  Receipt Date: 20251007
  Transmission Date: 20260118
  Serious: Yes (Hospitalization)
  Sender: IPSEN BIOPHARMACEUTICALS, INC.
  Company Number: US-IPSEN Group, Research and Development-2025-23010

PATIENT
  Age: 1 Year
  Sex: Male

DRUGS (8)
  1. BYLVAY [Suspect]
     Active Substance: ODEVIXIBAT
     Indication: Blood bilirubin abnormal
     Dosage: SPRINKLE/MIX CONTENTS OF TWO 200 MCG ORAL PELLETS WITH/OVER FOOD AND TAKE BY MOUTH ONCE DAILY WITH A MEAL
     Route: 048
     Dates: start: 20250116
  2. BYLVAY [Suspect]
     Active Substance: ODEVIXIBAT
     Indication: Off label use
  3. URSODIOL [Concomitant]
     Active Substance: URSODIOL
  4. VITAMIN D NOS [Concomitant]
     Active Substance: CHOLECALCIFEROL\ERGOCALCIFEROL
  5. VITAMIN K [Concomitant]
     Active Substance: PHYTONADIONE
  6. LACTULOSE [Concomitant]
     Active Substance: LACTULOSE
  7. VITAMINS NOS [Concomitant]
     Active Substance: VITAMINS
  8. LIVDELZI [Concomitant]
     Active Substance: SELADELPAR LYSINE

REACTIONS (2)
  - Liver transplant [Recovered/Resolved]
  - Off label use [Unknown]
